FAERS Safety Report 8087649-2 (Version None)
Quarter: 2012Q1

REPORT INFORMATION
  Report Type: 
  Country: None (occurrence: None)
  Receive Date: 20120128
  Receipt Date: 20110408
  Transmission Date: 20120608
  Serious: No
  Sender: FDA-Public Use
  Company Number: US-ABBOTT-11P-163-0717989-00

PATIENT
  Sex: Male

DRUGS (3)
  1. BENICAR [Concomitant]
     Indication: HYPERTENSION
  2. PREDNISONE TAB [Concomitant]
     Indication: CROHN'S DISEASE
  3. HUMIRA [Suspect]
     Indication: CROHN'S DISEASE
     Dosage: LOADING DOSE OF FOUR INJECTIONS
     Dates: start: 20110401

REACTIONS (2)
  - HAEMATOCHEZIA [None]
  - DEFAECATION URGENCY [None]
